FAERS Safety Report 9912401 (Version 1)
Quarter: 2014Q1

REPORT INFORMATION
  Report Type: Spontaneous
  Country: US (occurrence: US)
  Receive Date: 20140220
  Receipt Date: 20140220
  Transmission Date: 20141002
  Serious: No
  Sender: FDA-Public Use
  Company Number: US-009507513-1402USA008317

PATIENT
  Age: 30 Year
  Sex: Female
  Weight: 71.66 kg

DRUGS (1)
  1. IMPLANON [Suspect]
     Indication: CONTRACEPTION
     Dosage: 1 ROD UP TO 3 YEARS; LEFT ARM
     Dates: start: 20110110

REACTIONS (3)
  - Nausea [Unknown]
  - Fatigue [Unknown]
  - Incorrect drug administration duration [Unknown]
